FAERS Safety Report 4965624-1 (Version None)
Quarter: 2006Q1

REPORT INFORMATION
  Report Type: 
  Country: None (occurrence: None)
  Receive Date: 20060201
  Receipt Date: 20051210
  Transmission Date: 20060701
  Serious: No
  Sender: FDA-Public Use
  Company Number: 2005PV005708

PATIENT
  Age: 78 Year
  Sex: Female
  Weight: 97.5234 kg

DRUGS (3)
  1. BYETTA [Suspect]
     Indication: DIABETES MELLITUS NON-INSULIN-DEPENDENT
     Dosage: 5 MCG;BID;SC
     Route: 058
     Dates: start: 20051208
  2. LANTUS [Concomitant]
  3. GLUCOTROL XL [Concomitant]

REACTIONS (6)
  - DECREASED APPETITE [None]
  - FLATULENCE [None]
  - HYPOAESTHESIA [None]
  - INFREQUENT BOWEL MOVEMENTS [None]
  - NAUSEA [None]
  - WEIGHT DECREASED [None]
